FAERS Safety Report 19072514 (Version 1)
Quarter: 2021Q1

REPORT INFORMATION
  Report Type: Report from Study
  Country: US (occurrence: US)
  Receive Date: 20210330
  Receipt Date: 20210330
  Transmission Date: 20210420
  Serious: Yes (Death, Other)
  Sender: FDA-Public Use
  Company Number: US-GLAXOSMITHKLINE-US2021AMR018659

PATIENT
  Sex: Male

DRUGS (1)
  1. BELANTAMAB MAFODOTIN. [Suspect]
     Active Substance: BELANTAMAB MAFODOTIN
     Indication: PRODUCT USED FOR UNKNOWN INDICATION
     Dosage: 3 DF, HAD TOTAL OF 3 INFUSIONS OF BLENREP

REACTIONS (5)
  - Keratopathy [Unknown]
  - Visual acuity reduced [Unknown]
  - Death [Fatal]
  - Corneal opacity [Unknown]
  - Plasma cell myeloma [Unknown]
